FAERS Safety Report 7438149-1 (Version None)
Quarter: 2011Q2

REPORT INFORMATION
  Report Type: 
  Country: None (occurrence: None)
  Receive Date: 20110419
  Receipt Date: 20110405
  Transmission Date: 20111010
  Serious: Yes (Hospitalization)
  Sender: FDA-Public Use
  Company Number: 025861

PATIENT
  Sex: Female
  Weight: 65 kg

DRUGS (6)
  1. CARBAMAZEPINE [Concomitant]
  2. LACOSAMIDE [Suspect]
     Indication: EPILEPSY
     Dates: end: 20110222
  3. ACETAMINOPHEN [Concomitant]
  4. IBUPROFEN [Concomitant]
  5. PANTOZOL /01263202/ [Concomitant]
  6. PREDNISOLON /00016201/ [Concomitant]

REACTIONS (9)
  - DIZZINESS [None]
  - GRAND MAL CONVULSION [None]
  - MEDICAL DEVICE COMPLICATION [None]
  - SYNCOPE [None]
  - SOMNOLENCE [None]
  - OSTEOPOROTIC FRACTURE [None]
  - FALL [None]
  - CONCUSSION [None]
  - RADIUS FRACTURE [None]
